FAERS Safety Report 5601244-3 (Version None)
Quarter: 2008Q1

REPORT INFORMATION
  Report Type: 
  Country: None (occurrence: None)
  Receive Date: 20080118
  Receipt Date: 20071227
  Transmission Date: 20080703
  Serious: Yes (Hospitalization)
  Sender: FDA-Public Use
  Company Number: 6040066

PATIENT
  Age: 54 Year
  Sex: Female

DRUGS (4)
  1. BISOPROLOL FUMARATE [Suspect]
     Indication: CARDIAC FAILURE
     Dosage: ORAL
     Route: 048
     Dates: start: 20070918, end: 20071106
  2. TRIATEC(TABLET) (RAMIPRIL) [Suspect]
     Indication: CARDIAC FAILURE
     Dosage: ORAL
     Route: 048
     Dates: start: 20070918, end: 20071106
  3. PREVISCAN(TABLET) (FLUINDIONE) [Suspect]
     Indication: ARRHYTHMIA
     Dosage: 12,5 MG (12,5 MG, 1 IN 1 D) ORAL
     Route: 048
     Dates: start: 20070918
  4. CORDARONE [Suspect]
     Indication: ARRHYTHMIA
     Dosage: 100 MG (100 MG, 1 IN 1 D) ORAL
     Route: 048

REACTIONS (9)
  - ARRHYTHMIA [None]
  - ARTHRALGIA [None]
  - CONDITION AGGRAVATED [None]
  - ERYTHEMA [None]
  - GENERALISED OEDEMA [None]
  - REFUSAL OF TREATMENT BY PATIENT [None]
  - SCLERODERMA [None]
  - SKIN ULCER [None]
  - WOUND SECRETION [None]
